FAERS Safety Report 19304867 (Version 2)
Quarter: 2021Q2

REPORT INFORMATION
  Report Type: Spontaneous
  Country: US (occurrence: US)
  Receive Date: 20210525
  Receipt Date: 20210608
  Transmission Date: 20210717
  Serious: No
  Sender: FDA-Public Use
  Company Number: US-GLAXOSMITHKLINE-US2021AMR108479

PATIENT
  Sex: Male

DRUGS (1)
  1. ALBUTEROL SULFATE. [Suspect]
     Active Substance: ALBUTEROL SULFATE
     Indication: ASTHMA
     Dosage: UNK, 90MCG
     Route: 055
     Dates: start: 202103

REACTIONS (4)
  - Asthma [Unknown]
  - Drug ineffective [Unknown]
  - Pharyngeal swelling [Unknown]
  - Reaction to excipient [Unknown]
